FAERS Safety Report 7435554-4 (Version None)
Quarter: 2011Q2

REPORT INFORMATION
  Report Type: 
  Country: None (occurrence: None)
  Receive Date: 20110425
  Receipt Date: 20110420
  Transmission Date: 20111010
  Serious: No
  Sender: FDA-Public Use
  Company Number: US-PFIZER INC-2011086755

PATIENT
  Sex: Female
  Weight: 70.295 kg

DRUGS (1)
  1. ADVIL COLD AND SINUS [Suspect]
     Indication: SINUS DISORDER
     Dosage: 200/30 MG, UNK
     Dates: start: 20110419

REACTIONS (2)
  - HYPERSENSITIVITY [None]
  - DRUG INEFFECTIVE [None]
